FAERS Safety Report 24248343 (Version 4)
Quarter: 2024Q3

REPORT INFORMATION
  Report Type: Report from Study
  Country: JP (occurrence: JP)
  Receive Date: 20240826
  Receipt Date: 20240918
  Transmission Date: 20241017
  Serious: Yes (Hospitalization)
  Sender: SANOFI AVENTIS
  Company Number: JP-SA-2024SA247497

PATIENT
  Age: 75 Year

DRUGS (1)
  1. DUPILUMAB [Suspect]
     Active Substance: DUPILUMAB
     Indication: Neurodermatitis
     Dosage: UNK
     Route: 058
     Dates: start: 20240704, end: 2024

REACTIONS (4)
  - Calculus urinary [Recovering/Resolving]
  - Blood uric acid increased [Recovering/Resolving]
  - Gout [Unknown]
  - Gout [Unknown]

NARRATIVE: CASE EVENT DATE: 20240701
